FAERS Safety Report 24549935 (Version 1)
Quarter: 2024Q4

REPORT INFORMATION
  Report Type: Spontaneous
  Country: US (occurrence: None)
  Receive Date: 20241024
  Receipt Date: 20241024
  Transmission Date: 20250114
  Serious: No
  Sender: Public
  Company Number: None

PATIENT
  Sex: 0

DRUGS (2)
  1. TENEX [Suspect]
     Active Substance: GUANFACINE HYDROCHLORIDE
  2. INTUNIV [Suspect]
     Active Substance: GUANFACINE HYDROCHLORIDE

REACTIONS (2)
  - Abdominal discomfort [None]
  - Sleep disorder [None]

NARRATIVE: CASE EVENT DATE: 20241024
